FAERS Safety Report 5285725-0 (Version None)
Quarter: 2007Q1

REPORT INFORMATION
  Report Type: 
  Country: None (occurrence: None)
  Receive Date: 20070126
  Receipt Date: 20060928
  Transmission Date: 20070707
  Serious: No
  Sender: FDA-Public Use
  Company Number: 2006CT000759

PATIENT
  Age: 28 Year
  Sex: Female
  Weight: 90.7 kg

DRUGS (19)
  1. VENTAVIS [Suspect]
     Indication: PULMONARY HYPERTENSION
     Dosage: 5 UG;6XD;INH
     Route: 055
     Dates: start: 20060901
  2. WARFARIN SODIUM [Concomitant]
  3. HEPARIN [Concomitant]
  4. POTASSIUM CHLORIDE [Concomitant]
  5. MAGNESIUM OXIDE [Concomitant]
  6. SYNTHROID [Concomitant]
  7. VITAMIN CAP [Concomitant]
  8. CALCIUM CARBONATE [Concomitant]
  9. OXYGEN [Concomitant]
  10. ACIPHEX [Concomitant]
  11. LASIX [Concomitant]
  12. FERROUS SULFATE [Concomitant]
  13. TRACLEER [Concomitant]
  14. SPIRONOLACTONE [Concomitant]
  15. AMILORIDE HYDROCHLORIDE [Concomitant]
  16. PAXIL [Concomitant]
  17. DIGOXIN [Concomitant]
  18. BACID [Concomitant]
  19. LACTOBACILLUS ACIDOPHILUS [Concomitant]

REACTIONS (1)
  - URTICARIA [None]
